FAERS Safety Report 17987051 (Version 1)
Quarter: 2020Q3

REPORT INFORMATION
  Report Type: Spontaneous
  Country: ES (occurrence: ES)
  Receive Date: 20200706
  Receipt Date: 20200706
  Transmission Date: 20201103
  Serious: Yes (Hospitalization)
  Sender: FDA-Public Use
  Company Number: ES-ROCHE-2635110

PATIENT
  Age: 47 Year
  Sex: Male

DRUGS (1)
  1. VEMURAFENIB. [Suspect]
     Active Substance: VEMURAFENIB
     Indication: MALIGNANT MELANOMA STAGE IV
     Route: 048
     Dates: start: 20200526, end: 2020

REACTIONS (6)
  - Acute febrile neutrophilic dermatosis [Recovering/Resolving]
  - Musculoskeletal pain [Recovering/Resolving]
  - Panniculitis [Recovering/Resolving]
  - Acute kidney injury [Recovering/Resolving]
  - Dysgeusia [Recovering/Resolving]
  - Pyrexia [Recovering/Resolving]

NARRATIVE: CASE EVENT DATE: 20200608
